FAERS Safety Report 20313784 (Version 5)
Quarter: 2022Q3

REPORT INFORMATION
  Report Type: Spontaneous
  Country: US (occurrence: US)
  Receive Date: 20220109
  Receipt Date: 20220821
  Transmission Date: 20221027
  Serious: No
  Sender: FDA-Public Use
  Company Number: US-SANOFI-00915391

PATIENT
  Age: 73 Year
  Sex: Female

DRUGS (1)
  1. NASACORT AQ [Suspect]
     Active Substance: TRIAMCINOLONE ACETONIDE
     Indication: Nasal congestion
     Dosage: UNK

REACTIONS (2)
  - Product delivery mechanism issue [Unknown]
  - Drug ineffective [Unknown]
